FAERS Safety Report 4789724-4 (Version None)
Quarter: 2005Q4

REPORT INFORMATION
  Report Type: 
  Country: None (occurrence: None)
  Receive Date: 20051006
  Receipt Date: 20040427
  Transmission Date: 20060501
  Serious: Yes (Hospitalization)
  Sender: FDA-Public Use
  Company Number: US-BOEHRINGER INGELHEIM PHARMACEUTICALS, INC.-2004-BP-03273BP

PATIENT
  Sex: Female
  Weight: 68.9 kg

DRUGS (8)
  1. TIPRANAVIR / RITONAVIR CAPSULES [Suspect]
     Indication: HIV INFECTION
  2. NEURONTIN [Concomitant]
     Indication: NEUROPATHY
     Route: 048
  3. ZOLOFT [Concomitant]
     Indication: DEPRESSION
     Route: 048
  4. ZERIT [Concomitant]
     Indication: HIV INFECTION
     Route: 048
  5. COMBIVENT [Concomitant]
     Indication: CHRONIC OBSTRUCTIVE PULMONARY DISEASE
     Dates: start: 20030901
  6. MORPHINE [Concomitant]
     Indication: PAIN
     Route: 048
  7. HYDROCHLOROTHIAZIDE [Concomitant]
     Indication: HYPERTENSION
     Route: 048
  8. LORAZEPAM [Concomitant]
     Indication: ANXIETY
     Route: 048

REACTIONS (14)
  - CAMPYLOBACTER INTESTINAL INFECTION [None]
  - CLOSTRIDIUM COLITIS [None]
  - DEHYDRATION [None]
  - DIARRHOEA [None]
  - DYSPNOEA [None]
  - GASTROENTERITIS [None]
  - GASTROENTERITIS CRYPTOSPORIDIAL [None]
  - INTESTINAL ISCHAEMIA [None]
  - ISOSPORIASIS [None]
  - NAUSEA [None]
  - PNEUMOCYSTIS JIROVECI PNEUMONIA [None]
  - SALMONELLOSIS [None]
  - SHIGELLA INFECTION [None]
  - VOMITING [None]
